FAERS Safety Report 8899139 (Version 1)
Quarter: 2012Q4

REPORT INFORMATION
  Report Type: 
  Country: US (occurrence: US)
  Receive Date: 20121108
  Receipt Date: 20121108
  Transmission Date: 20130627
  Serious: No
  Sender: FDA-Public Use
  Company Number: US-AMGEN-USASP2012034955

PATIENT
  Sex: Female
  Weight: 113.38 kg

DRUGS (11)
  1. ENBREL [Suspect]
     Indication: PRODUCT USED FOR UNKNOWN INDICATION
     Dosage: 50 mg, qwk
     Route: 058
  2. METOPROLOL [Concomitant]
     Dosage: 25 mg, UNK
  3. CARDIZEM                           /00489701/ [Concomitant]
     Dosage: 30 mg, UNK
  4. PRILOSEC                           /00661201/ [Concomitant]
     Dosage: 10 mg, UNK
  5. ALEVE [Concomitant]
     Dosage: 220 mg, UNK
  6. MULTIVITAMIN                       /00097801/ [Concomitant]
     Dosage: UNK
  7. VITAMIN D /00107901/ [Concomitant]
     Dosage: 1000 IU, UNK
  8. CALCIUM [Concomitant]
     Dosage: 500 UNK, UNK
  9. GLUCOSAMINE + CHONDROITIN          /01430901/ [Concomitant]
     Dosage: UNK
  10. ZYRTEC [Concomitant]
     Dosage: 5 mg, UNK
  11. ALBUTEROL                          /00139501/ [Concomitant]
     Dosage: 0.083 %, UNK

REACTIONS (4)
  - Injection site pain [Unknown]
  - Injection site erythema [Unknown]
  - Injection site swelling [Unknown]
  - Injection site pruritus [Unknown]
